FAERS Safety Report 8371210-6 (Version None)
Quarter: 2012Q2

REPORT INFORMATION
  Report Type: 
  Country: None (occurrence: None)
  Receive Date: 20120518
  Receipt Date: 20120516
  Transmission Date: 20120825
  Serious: Yes (Hospitalization)
  Sender: FDA-Public Use
  Company Number: PHHY2012DE041831

PATIENT
  Age: 82 Year
  Sex: Female

DRUGS (6)
  1. MEROPENEM [Concomitant]
     Indication: BACTERIAL INFECTION
     Dosage: UNK UKN, UNK
  2. TIGECYCLINE [Concomitant]
     Dosage: UNK UKN, UNK
  3. NSAID'S [Suspect]
     Indication: BACTERIAL INFECTION
     Dosage: UNK UKN, UNK
  4. VANCOMYCIN [Suspect]
     Indication: BACTERIAL INFECTION
     Route: 042
  5. DIURETICS [Suspect]
     Indication: BACTERIAL INFECTION
     Dosage: UNK UKN, UNK
  6. RIFAMPICIN [Concomitant]
     Indication: BACTERIAL INFECTION
     Dosage: UNK UKN, UNK

REACTIONS (8)
  - BRADYCARDIA [None]
  - DEPRESSED LEVEL OF CONSCIOUSNESS [None]
  - URINE OUTPUT DECREASED [None]
  - RENAL FAILURE ACUTE [None]
  - HYPERKALAEMIA [None]
  - ANURIA [None]
  - HYPOTENSION [None]
  - RENAL IMPAIRMENT [None]
